FAERS Safety Report 6431834-X (Version None)
Quarter: 2009Q4

REPORT INFORMATION
  Report Type: 
  Country: None (occurrence: None)
  Receive Date: 20091104
  Receipt Date: 20091027
  Transmission Date: 20100525
  Serious: Yes (Death, Hospitalization)
  Sender: FDA-Public Use
  Company Number: 2009AL006871

PATIENT
  Age: 26 Year
  Sex: Male

DRUGS (6)
  1. OXYCODONE HCL [Suspect]
  2. ZYPREXA [Concomitant]
  3. LUVOX [Concomitant]
  4. AMBIEN [Concomitant]
  5. FLUVOXAMINE MALEATE [Concomitant]
  6. OLANZAPINE [Concomitant]

REACTIONS (6)
  - BLADDER DILATATION [None]
  - COMPLETED SUICIDE [None]
  - DRUG TOXICITY [None]
  - OVERDOSE [None]
  - PNEUMONIA [None]
  - UNRESPONSIVE TO STIMULI [None]
